FAERS Safety Report 12165721 (Version 2)
Quarter: 2016Q3

REPORT INFORMATION
  Report Type: Spontaneous
  Country: US (occurrence: US)
  Receive Date: 20160309
  Receipt Date: 20160711
  Transmission Date: 20161109
  Serious: Yes (Hospitalization, Other)
  Sender: FDA-Public Use
  Company Number: US-009507513-1603USA002761

PATIENT
  Sex: Female
  Weight: 54.42 kg

DRUGS (2)
  1. NUVARING [Suspect]
     Active Substance: ETHINYL ESTRADIOL\ETONOGESTREL
     Indication: MENSTRUAL CYCLE MANAGEMENT
     Dosage: 3 WEEKS IN, 1 WEEK OUT
     Route: 067
     Dates: start: 20131231, end: 20140310
  2. NUVARING [Suspect]
     Active Substance: ETHINYL ESTRADIOL\ETONOGESTREL
     Indication: CONTRACEPTION
     Dosage: 3 WEEKS IN, 1 WEEK OUT
     Route: 067
     Dates: start: 20120216, end: 20130709

REACTIONS (7)
  - Infection [Unknown]
  - Cholelithiasis [Unknown]
  - Off label use [Unknown]
  - Deep vein thrombosis [Unknown]
  - Lyme disease [Unknown]
  - Pulmonary infarction [Unknown]
  - Acne [Unknown]

NARRATIVE: CASE EVENT DATE: 20121025
